FAERS Safety Report 8445541-5 (Version None)
Quarter: 2012Q2

REPORT INFORMATION
  Report Type: 
  Country: None (occurrence: None)
  Receive Date: 20120618
  Receipt Date: 20120613
  Transmission Date: 20120825
  Serious: Yes (Hospitalization)
  Sender: FDA-Public Use
  Company Number: US-MERCK-1203USA01855

PATIENT
  Age: 70 Year
  Sex: Female
  Weight: 64 kg

DRUGS (8)
  1. FOSAMAX [Suspect]
     Indication: OSTEOPOROSIS
     Route: 048
     Dates: start: 19980101, end: 20050926
  2. VITAMIN E [Concomitant]
     Route: 065
     Dates: start: 19900101
  3. ICAPS [Concomitant]
     Route: 065
     Dates: start: 19900101
  4. ALENDRONATE SODIUM [Suspect]
     Indication: OSTEOPOROSIS
     Route: 048
     Dates: start: 20080410, end: 20100315
  5. FOSAMAX [Suspect]
     Route: 048
     Dates: start: 20070317, end: 20080319
  6. VITAMINS (UNSPECIFIED) [Concomitant]
     Route: 065
     Dates: start: 19900101
  7. CHONDROITIN SULFATE SODIUM AND GLUCOSAMINE SULFATE [Concomitant]
     Route: 065
     Dates: start: 19900101
  8. FOSAMAX [Suspect]
     Route: 048
     Dates: start: 20051117, end: 20070201

REACTIONS (41)
  - CARPAL TUNNEL SYNDROME [None]
  - SCOLIOSIS [None]
  - DIVERTICULUM [None]
  - STAPHYLOCOCCAL INFECTION [None]
  - LUMBAR RADICULOPATHY [None]
  - KYPHOSIS [None]
  - HEAD INJURY [None]
  - AORTIC VALVE SCLEROSIS [None]
  - MUSCLE STRAIN [None]
  - DERMATITIS ALLERGIC [None]
  - OSTEOPENIA [None]
  - MYOCARDIAL ISCHAEMIA [None]
  - AORTIC ARTERIOSCLEROSIS [None]
  - AORTIC VALVE INCOMPETENCE [None]
  - POST LAMINECTOMY SYNDROME [None]
  - WOUND [None]
  - STRESS [None]
  - NERVE COMPRESSION [None]
  - IRRITABLE BOWEL SYNDROME [None]
  - HYPERCHOLESTEROLAEMIA [None]
  - CARDIOMEGALY [None]
  - CHRONIC OBSTRUCTIVE PULMONARY DISEASE [None]
  - OSTEOARTHRITIS [None]
  - PAIN IN EXTREMITY [None]
  - GASTROOESOPHAGEAL REFLUX DISEASE [None]
  - HYPERTENSION [None]
  - HIP FRACTURE [None]
  - SPINAL COLUMN STENOSIS [None]
  - CATARACT [None]
  - CERVICOBRACHIAL SYNDROME [None]
  - ATROPHIC VULVOVAGINITIS [None]
  - TRIGGER FINGER [None]
  - FEMUR FRACTURE [None]
  - FALL [None]
  - INTERVERTEBRAL DISC DEGENERATION [None]
  - DYSPNOEA [None]
  - AORTIC DISORDER [None]
  - NECK INJURY [None]
  - HYPERTRIGLYCERIDAEMIA [None]
  - RHEUMATOID ARTHRITIS [None]
  - RASH [None]
